FAERS Safety Report 15524825 (Version 2)
Quarter: 2018Q4

REPORT INFORMATION
  Report Type: Spontaneous
  Country: CZ (occurrence: CZ)
  Receive Date: 20181018
  Receipt Date: 20181024
  Transmission Date: 20190205
  Serious: Yes (Death, Life-Threatening, Hospitalization, Other)
  Sender: FDA-Public Use
  Company Number: CZ-CELLTRION INC.-2018CZ022955

PATIENT

DRUGS (11)
  1. SOLU-MEDROL [Suspect]
     Active Substance: METHYLPREDNISOLONE SODIUM SUCCINATE
     Indication: ENCEPHALITIS
     Dosage: 160 MG, 6 DAYS, HIGH DOSE
     Route: 042
     Dates: start: 20160811, end: 20160817
  2. INFLIXIMAB (UNKNOWN) [Suspect]
     Active Substance: INFLIXIMAB
     Indication: ENCEPHALOPATHY
     Dosage: 5 MG/KG, ABSOLUTE DOSE 450 MG
     Route: 065
     Dates: start: 20180819, end: 20180819
  3. HALOPERIDOL                        /00027402/ [Concomitant]
     Active Substance: HALOPERIDOL
     Dosage: 15 MG, DAILY
     Dates: start: 2016
  4. HALOPERIDOL                        /00027402/ [Concomitant]
     Active Substance: HALOPERIDOL
     Dosage: 15 MG
     Dates: start: 2016
  5. OLANZAPINE. [Concomitant]
     Active Substance: OLANZAPINE
     Indication: PSYCHOTIC DISORDER
     Dosage: 20 MG, DAILY
     Dates: start: 2016
  6. SULFAMETHOXAZOLE, TRIMETHOPRIM, BROMHEXINE HY [Concomitant]
     Indication: INFECTION PROPHYLAXIS
     Dosage: 960 MG, BID
  7. CLONAZEPAM. [Concomitant]
     Active Substance: CLONAZEPAM
     Indication: PSYCHOTIC DISORDER
     Dosage: 2 MG, DAILY
     Dates: start: 2016, end: 2016
  8. HALOPERIDOL                        /00027402/ [Concomitant]
     Active Substance: HALOPERIDOL
     Indication: PSYCHOTIC DISORDER
     Dosage: 15 MG, DAILY
  9. SOLU-MEDROL [Suspect]
     Active Substance: METHYLPREDNISOLONE SODIUM SUCCINATE
     Indication: ENCEPHALITIS
     Dosage: 2 MG/KG, QD
     Route: 042
  10. INFLIXIMAB (UNKNOWN) [Suspect]
     Active Substance: INFLIXIMAB
     Indication: DYSKINESIA
  11. SOLU-MEDROL [Suspect]
     Active Substance: METHYLPREDNISOLONE SODIUM SUCCINATE
     Indication: TOXIC ENCEPHALOPATHY

REACTIONS (4)
  - Drug ineffective [Unknown]
  - Off label use [Unknown]
  - Death [Fatal]
  - Product use in unapproved indication [Unknown]

NARRATIVE: CASE EVENT DATE: 201608
